FAERS Safety Report 15189932 (Version 1)
Quarter: 2018Q3

REPORT INFORMATION
  Report Type: Spontaneous
  Country: US (occurrence: US)
  Receive Date: 20180625
  Receipt Date: 20180625
  Transmission Date: 20181010
  Serious: No
  Sender: FDA-Public Use
  Company Number: None

PATIENT
  Age: 61 Year
  Sex: Female

DRUGS (1)
  1. AFINITOR [Suspect]
     Active Substance: EVEROLIMUS
     Indication: BREAST CANCER
     Route: 048
     Dates: start: 20180301

REACTIONS (9)
  - Dizziness [None]
  - Vaginal mucosal blistering [None]
  - Photophobia [None]
  - Pain in extremity [None]
  - Visual impairment [None]
  - Abdominal pain upper [None]
  - Vulvovaginal mycotic infection [None]
  - Nausea [None]
  - Epistaxis [None]

NARRATIVE: CASE EVENT DATE: 20180425
